FAERS Safety Report 17861055 (Version 2)
Quarter: 2020Q2

REPORT INFORMATION
  Report Type: Spontaneous
  Country: IT (occurrence: IT)
  Receive Date: 20200604
  Receipt Date: 20200616
  Transmission Date: 20200714
  Serious: Yes (Death, Other)
  Sender: FDA-Public Use
  Company Number: IT-SA-2020SA138654

PATIENT

DRUGS (4)
  1. DEPAKIN [Concomitant]
     Active Substance: VALPROATE SODIUM
     Indication: EPILEPSY
     Dosage: 800 MG, QD
     Route: 065
     Dates: start: 20200410, end: 20200515
  2. KEPPRA [Concomitant]
     Active Substance: LEVETIRACETAM
     Indication: EPILEPSY
     Dosage: UNK
     Route: 042
     Dates: start: 20200410, end: 20200515
  3. CLEXANE T [Suspect]
     Active Substance: ENOXAPARIN SODIUM
     Indication: THROMBOSIS PROPHYLAXIS
     Dosage: 12000 KIU, QD
     Route: 065
     Dates: start: 20200410, end: 20200514
  4. GARDENALE [PHENOBARBITAL] [Concomitant]
     Active Substance: PHENOBARBITAL

REACTIONS (2)
  - Rash [Fatal]
  - Epidermolysis bullosa [Fatal]

NARRATIVE: CASE EVENT DATE: 20200514
